FAERS Safety Report 8162367-0 (Version None)
Quarter: 2012Q1

REPORT INFORMATION
  Report Type: 
  Country: None (occurrence: None)
  Receive Date: 20120224
  Receipt Date: 20120213
  Transmission Date: 20120608
  Serious: Yes (Other)
  Sender: FDA-Public Use
  Company Number: CN-SANOFI-AVENTIS-2012SA008997

PATIENT
  Age: 37 Year
  Sex: Female
  Weight: 60 kg

DRUGS (4)
  1. FLURBIPROFEN [Concomitant]
     Route: 042
     Dates: start: 20120101, end: 20120101
  2. ENOXAPARIN SODIUM [Suspect]
     Indication: ANTICOAGULANT THERAPY
     Route: 058
     Dates: start: 20120130, end: 20120203
  3. AESCINE [Concomitant]
     Route: 042
     Dates: start: 20120101, end: 20120101
  4. CELEBREX [Concomitant]
     Route: 048
     Dates: start: 20120101, end: 20120101

REACTIONS (2)
  - INJECTION SITE REACTION [None]
  - HAEMOGLOBIN DECREASED [None]
